FAERS Safety Report 6033503-7 (Version None)
Quarter: 2009Q1

REPORT INFORMATION
  Report Type: 
  Country: None (occurrence: None)
  Receive Date: 20090109
  Receipt Date: 20081224
  Transmission Date: 20090719
  Serious: No
  Sender: FDA-Public Use
  Company Number: US-B.I. PHARMACEUTICALS,INC./RIDGEFIELD-2008-BP-19123BP

PATIENT
  Age: 73 Year
  Sex: Female

DRUGS (4)
  1. MICARDIS [Suspect]
     Indication: HYPERTENSION
     Dosage: 20MG
     Route: 048
     Dates: start: 20081201
  2. SYNTHROID [Concomitant]
  3. METFORMIN HCL [Concomitant]
  4. JANUVIA [Concomitant]

REACTIONS (2)
  - BACK PAIN [None]
  - TRICHORRHEXIS [None]
